FAERS Safety Report 5493834-6 (Version None)
Quarter: 2007Q4

REPORT INFORMATION
  Report Type: 
  Country: None (occurrence: None)
  Receive Date: 20071019
  Receipt Date: 20071015
  Transmission Date: 20080405
  Serious: Yes (Life-Threatening, Disabling, Other)
  Sender: FDA-Public Use
  Company Number: 163-20785-07090998

PATIENT
  Age: 66 Year
  Sex: Male

DRUGS (3)
  1. THALOMID [Suspect]
     Indication: MULTIPLE MYELOMA
     Dosage: 150-200MG, DAILY, ORAL
     Route: 048
     Dates: start: 20060401, end: 20070901
  2. DEXAMETHASONE TAB [Concomitant]
  3. ERYTHROPOETIN               (EPOETIN ALFA) [Concomitant]

REACTIONS (3)
  - DIABETES MELLITUS [None]
  - NEUROPATHY [None]
  - PULMONARY FIBROSIS [None]
